FAERS Safety Report 8140508-9 (Version None)
Quarter: 2012Q1

REPORT INFORMATION
  Report Type: 
  Country: None (occurrence: None)
  Receive Date: 20120216
  Receipt Date: 20120209
  Transmission Date: 20120608
  Serious: Yes (Other)
  Sender: FDA-Public Use
  Company Number: US-BAYER-200939466NA

PATIENT
  Sex: Male
  Weight: 61 kg

DRUGS (39)
  1. DOPAMINE HCL [Concomitant]
     Indication: PRODUCT USED FOR UNKNOWN INDICATION
     Dosage: UNK
     Route: 042
     Dates: start: 20050323
  2. DIOVAN HCT [Concomitant]
     Indication: PRODUCT USED FOR UNKNOWN INDICATION
     Dosage: 80/12.5 MG
     Route: 048
  3. PLATELETS [Concomitant]
  4. PROPOXYPHENE HYDROCHLORIDE [Concomitant]
     Dosage: 1 UNK, UNK
     Route: 048
  5. SUCCINYLCHOLINE CHLORIDE [Concomitant]
     Dosage: UNK
     Route: 042
     Dates: start: 20050328
  6. CEFUROXIME [Concomitant]
     Dosage: 1.5 G, UNK
     Route: 042
     Dates: start: 20050328
  7. METOCLOPRAMIDE [Concomitant]
     Dosage: UNK
     Route: 042
     Dates: start: 20050328
  8. NOREPINEPHRINE BITARTRATE [Concomitant]
     Dosage: UNK
     Route: 042
     Dates: start: 20050328
  9. TRASYLOL [Suspect]
     Indication: CORONARY ARTERY BYPASS
     Dosage: 100 ML, UNK
     Route: 042
     Dates: start: 20050328
  10. DOPAMINE HCL [Concomitant]
     Dosage: UNK
     Route: 042
     Dates: start: 20050328
  11. FENTANYL [Concomitant]
     Dosage: UNK
     Route: 042
     Dates: start: 20050323
  12. ATENOLOL [Concomitant]
     Indication: PRODUCT USED FOR UNKNOWN INDICATION
     Dosage: 25 MG, UNK
     Route: 048
     Dates: start: 20050323
  13. PROTAMINE SULFATE [Concomitant]
     Indication: PRODUCT USED FOR UNKNOWN INDICATION
     Dosage: 350 MG, UNK
     Route: 042
  14. MANNITOL [Concomitant]
     Indication: PRODUCT USED FOR UNKNOWN INDICATION
     Dosage: 25 G, UNK
     Route: 042
  15. MILRINONE [Concomitant]
     Dosage: UNK
     Route: 042
     Dates: start: 20050328
  16. PROPOFOL [Concomitant]
     Dosage: UNK
     Route: 042
     Dates: start: 20050328
  17. HEPARIN [Concomitant]
     Indication: PRODUCT USED FOR UNKNOWN INDICATION
     Dosage: 31000 U, UNK
     Route: 042
  18. TRASYLOL [Suspect]
     Dosage: 25 ML/HR
     Dates: start: 20050328
  19. ASPIRIN [Concomitant]
     Indication: PRODUCT USED FOR UNKNOWN INDICATION
     Dosage: 325 MG, UNK
     Route: 048
     Dates: start: 20050323
  20. HEPARIN [Concomitant]
     Dosage: 25,000 UNITES/250 ML AT 10 ML/HR
     Route: 042
     Dates: start: 20050324
  21. BICARBONAT [Concomitant]
     Indication: PRODUCT USED FOR UNKNOWN INDICATION
     Dosage: 100 MEQ, UNK
     Route: 042
  22. LASIX [Concomitant]
     Indication: PRODUCT USED FOR UNKNOWN INDICATION
     Dosage: 80 MG, UNK
     Route: 042
  23. CALCIUM CHLORIDE [Concomitant]
     Indication: PRODUCT USED FOR UNKNOWN INDICATION
     Dosage: 1 G, UNK
     Route: 042
  24. RED BLOOD CELLS [Concomitant]
  25. PLAVIX [Concomitant]
     Indication: PRODUCT USED FOR UNKNOWN INDICATION
     Dosage: 75 MG, UNK
     Route: 048
     Dates: start: 20050323
  26. FENTANYL [Concomitant]
     Dosage: UNK
     Route: 042
     Dates: start: 20050328
  27. MORPHINE [Concomitant]
     Dosage: UNK
     Route: 042
     Dates: start: 20050328
  28. PANCURONIUM BROMIDE [Concomitant]
     Dosage: UNK
     Route: 042
     Dates: start: 20050328
  29. LIPITOR [Concomitant]
     Indication: PRODUCT USED FOR UNKNOWN INDICATION
     Dosage: 80 MG, UNK
     Route: 048
     Dates: start: 20050323
  30. ACETAMINOPHEN [Concomitant]
     Indication: PRODUCT USED FOR UNKNOWN INDICATION
     Dosage: 325 MG, UNK
     Route: 048
     Dates: start: 20050323
  31. MAGNESIUM [Concomitant]
     Indication: PRODUCT USED FOR UNKNOWN INDICATION
     Dosage: 2 G, UNK
     Route: 042
  32. VERSED [Concomitant]
     Dosage: 2 MG, UNK
     Route: 042
  33. MIDAZOLAM [Concomitant]
     Dosage: UNK
     Route: 042
     Dates: start: 20050328
  34. AMINOCAPROIC ACID [Concomitant]
     Dosage: UNK
     Route: 042
     Dates: start: 20050328
  35. NITROGLYCERIN [Concomitant]
     Indication: PRODUCT USED FOR UNKNOWN INDICATION
     Dosage: 50MG/250ML
     Route: 042
     Dates: start: 20050323
  36. ALBUMIN (HUMAN) [Concomitant]
     Indication: PRODUCT USED FOR UNKNOWN INDICATION
     Dosage: 50 G, UNK
     Route: 042
  37. PHENYLEPHRINE HCL [Concomitant]
     Indication: PRODUCT USED FOR UNKNOWN INDICATION
     Dosage: 100 ML, UNK
     Route: 042
  38. VASOTEC [Concomitant]
     Dosage: 5 MG, QD
     Route: 048
     Dates: start: 20050324
  39. DROPERIDOL [Concomitant]
     Dosage: 1.25-2.5 MG
     Route: 042

REACTIONS (5)
  - RENAL FAILURE ACUTE [None]
  - INJURY [None]
  - PAIN [None]
  - RENAL FAILURE [None]
  - UNEVALUABLE EVENT [None]
